FAERS Safety Report 10801379 (Version 3)
Quarter: 2022Q3

REPORT INFORMATION
  Report Type: Other
  Country: US (occurrence: None)
  Receive Date: 20150217
  Receipt Date: 20220802
  Transmission Date: 20221027
  Serious: Yes (Life-Threatening)
  Sender: FDA-Public Use
  Company Number: US-ROCHE-1535202

PATIENT

DRUGS (3)
  1. RITUXIMAB [Suspect]
     Active Substance: RITUXIMAB
     Indication: Follicular lymphoma
     Dosage: DAY 8, 15 AND 22 OF CYCLE 1 AND THEN DAY 1 OF EACH SUBSEQUENT CYCLE.
     Route: 042
  2. LENALIDOMIDE [Suspect]
     Active Substance: LENALIDOMIDE
     Indication: Follicular lymphoma
     Route: 048
  3. IDELALISIB [Suspect]
     Active Substance: IDELALISIB
     Indication: Follicular lymphoma
     Route: 048

REACTIONS (9)
  - Lymphopenia [Unknown]
  - Platelet count decreased [Unknown]
  - Constipation [Unknown]
  - Fatigue [Unknown]
  - Hyperglycaemia [Unknown]
  - Hypocalcaemia [Unknown]
  - Hypophosphataemia [Unknown]
  - Rash maculo-papular [Unknown]
  - Neutrophil count decreased [Unknown]
